FAERS Safety Report 22010296 (Version 1)
Quarter: 2023Q1

REPORT INFORMATION
  Report Type: Spontaneous
  Country: AR (occurrence: AR)
  Receive Date: 20230220
  Receipt Date: 20230220
  Transmission Date: 20230417
  Serious: Yes (Life-Threatening, Hospitalization)
  Sender: FDA-Public Use
  Company Number: AR-002147023-NVSC2023AR037799

PATIENT
  Sex: Female

DRUGS (1)
  1. TEGRETOL [Suspect]
     Active Substance: CARBAMAZEPINE
     Indication: Product used for unknown indication
     Dosage: 200 MG
     Route: 048
     Dates: start: 20221220, end: 20230203

REACTIONS (14)
  - Drug hypersensitivity [Unknown]
  - Feeling abnormal [Unknown]
  - Urticaria [Unknown]
  - Pain in extremity [Unknown]
  - Gait disturbance [Unknown]
  - Limb discomfort [Unknown]
  - Skin exfoliation [Unknown]
  - Pruritus [Unknown]
  - Fatigue [Unknown]
  - Rash [Unknown]
  - Blister [Unknown]
  - Paraesthesia [Unknown]
  - Drug intolerance [Unknown]
  - Wrong technique in product usage process [Unknown]
